FAERS Safety Report 7388713-3 (Version None)
Quarter: 2011Q2

REPORT INFORMATION
  Report Type: 
  Country: None (occurrence: None)
  Receive Date: 20110401
  Receipt Date: 20110324
  Transmission Date: 20111010
  Serious: Yes (Hospitalization, Other)
  Sender: FDA-Public Use
  Company Number: DE-BRISTOL-MYERS SQUIBB COMPANY-15632573

PATIENT
  Age: 89 Year
  Sex: Female

DRUGS (6)
  1. PLAVIX [Concomitant]
     Indication: CORONARY ARTERY DISEASE
     Dosage: PLAVIX 75 MG FILM-COATED TABLETS
     Route: 048
     Dates: start: 20060101
  2. NITROGLYCERIN SPRAY [Interacting]
     Indication: CORONARY ARTERY DISEASE
     Dosage: SUBLINGUAL SPRAY, NITRANGIN PUMPSPRAY
     Route: 060
     Dates: start: 20060101
  3. KARVEZIDE FILM-COATED TABS 300/12.5 MG [Suspect]
     Indication: CORONARY ARTERY DISEASE
     Dosage: 1 DF=300/12.5MG
     Route: 048
     Dates: start: 20060101
  4. METOPROLOL AL [Interacting]
     Indication: CORONARY ARTERY DISEASE
     Dosage: TABS
     Route: 048
     Dates: start: 20060101, end: 20110212
  5. SIMVAHEXAL [Concomitant]
     Indication: HYPERLIPIDAEMIA
     Dosage: SIMVAHEXAL 40 MG FILM-COATED TABLETS
     Route: 048
     Dates: start: 20060101
  6. AMLODIPINE [Interacting]
     Indication: HYPERTENSION
     Dosage: AMLODIPINE TABS
     Route: 048
     Dates: start: 20060101

REACTIONS (2)
  - DRUG INTERACTION [None]
  - SYNCOPE [None]
